FAERS Safety Report 10242493 (Version 1)
Quarter: 2014Q2

REPORT INFORMATION
  Report Type: Spontaneous
  Country: JP (occurrence: JP)
  Receive Date: 20140617
  Receipt Date: 20140617
  Transmission Date: 20141212
  Serious: Yes (Death, Hospitalization, Other)
  Sender: FDA-Public Use
  Company Number: JP-ASTELLAS-2014US006872

PATIENT
  Age: 54 Year
  Sex: Female

DRUGS (2)
  1. ERLOTINIB [Suspect]
     Indication: LUNG ADENOCARCINOMA
     Route: 048
  2. ERLOTINIB [Suspect]
     Dosage: UNK, UNKNOWN FREQ.
     Route: 048

REACTIONS (3)
  - Purpura [Recovering/Resolving]
  - Rash [Unknown]
  - Disease progression [Fatal]
